FAERS Safety Report 17612480 (Version 1)
Quarter: 2020Q2

REPORT INFORMATION
  Report Type: Report from Study
  Country: FR (occurrence: FR)
  Receive Date: 20200401
  Receipt Date: 20200401
  Transmission Date: 20200713
  Serious: Yes (Hospitalization, Other)
  Sender: FDA-Public Use
  Company Number: FR-PURDUE-GBR-2020-0075942

PATIENT
  Age: 68 Year
  Sex: Male
  Weight: 85 kg

DRUGS (4)
  1. MORPHINE SULFATE. [Suspect]
     Active Substance: MORPHINE SULFATE
     Indication: PRODUCT USED FOR UNKNOWN INDICATION
     Dosage: UNK
     Route: 065
  2. BOSENTAN. [Concomitant]
     Active Substance: BOSENTAN
     Indication: PULMONARY ARTERIAL HYPERTENSION
     Dosage: UNK
  3. REMODULIN [Suspect]
     Active Substance: TREPROSTINIL
     Indication: PRODUCT USED FOR UNKNOWN INDICATION
     Dosage: UNK
     Route: 065
  4. TADALAFIL. [Concomitant]
     Active Substance: TADALAFIL
     Indication: PULMONARY ARTERIAL HYPERTENSION
     Dosage: UNK

REACTIONS (30)
  - Cardiac operation [Unknown]
  - Muscular weakness [Unknown]
  - Rash [Not Recovered/Not Resolved]
  - Concomitant disease aggravated [Not Recovered/Not Resolved]
  - General physical health deterioration [Unknown]
  - Chest discomfort [Recovered/Resolved]
  - Hot flush [Not Recovered/Not Resolved]
  - Pulmonary arterial pressure increased [Unknown]
  - Diarrhoea [Recovered/Resolved]
  - Influenza like illness [Unknown]
  - Dyspnoea [Not Recovered/Not Resolved]
  - Pruritus [Not Recovered/Not Resolved]
  - Fatigue [Not Recovered/Not Resolved]
  - Catheterisation cardiac [Unknown]
  - Sleep disorder [Not Recovered/Not Resolved]
  - Pulmonary embolism [Unknown]
  - Flushing [Not Recovered/Not Resolved]
  - Headache [Not Recovered/Not Resolved]
  - Nausea [Unknown]
  - Oedema peripheral [Recovered/Resolved]
  - Somnolence [Unknown]
  - Myalgia [Not Recovered/Not Resolved]
  - Right ventricular systolic pressure increased [Unknown]
  - Catheter site pain [Unknown]
  - Weight increased [Recovered/Resolved]
  - Injection site pain [Unknown]
  - Localised oedema [Recovered/Resolved]
  - Arrhythmia [Unknown]
  - Irritability [Not Recovered/Not Resolved]
  - Pain in jaw [Not Recovered/Not Resolved]

NARRATIVE: CASE EVENT DATE: 20190311
